FAERS Safety Report 7944246-4 (Version None)
Quarter: 2011Q4

REPORT INFORMATION
  Report Type: 
  Country: None (occurrence: None)
  Receive Date: 20111129
  Receipt Date: 20111121
  Transmission Date: 20120403
  Serious: No
  Sender: FDA-Public Use
  Company Number: US-BIOGENIDEC-2011BI008908

PATIENT
  Age: 25 Year
  Sex: Female

DRUGS (2)
  1. TYSABRI [Suspect]
     Indication: MULTIPLE SCLEROSIS
     Route: 042
     Dates: start: 20110121
  2. AMBIEN [Concomitant]
     Indication: SLEEP DISORDER
     Dates: start: 20070101

REACTIONS (8)
  - HYPOGLYCAEMIA [None]
  - INSOMNIA [None]
  - FEELING HOT [None]
  - LOSS OF CONSCIOUSNESS [None]
  - SYNCOPE [None]
  - EXCORIATION [None]
  - VITREOUS FLOATERS [None]
  - DIZZINESS [None]
